FAERS Safety Report 9934952 (Version 2)
Quarter: 2014Q2

REPORT INFORMATION
  Report Type: Report from Study
  Country: US (occurrence: US)
  Receive Date: 20140228
  Receipt Date: 20140513
  Transmission Date: 20141212
  Serious: Yes (Hospitalization)
  Sender: FDA-Public Use
  Company Number: US-ASTRAZENECA-2014SE12740

PATIENT
  Age: 69 Year
  Sex: Female
  Weight: 48.5 kg

DRUGS (11)
  1. LISINOPRIL [Suspect]
     Indication: BLOOD PRESSURE ABNORMAL
     Route: 048
     Dates: start: 201307, end: 20140216
  2. BRILINTA [Suspect]
     Indication: ACUTE CORONARY SYNDROME
     Route: 048
     Dates: start: 20131223
  3. BRILINTA [Suspect]
     Indication: STENT PLACEMENT
     Route: 048
     Dates: start: 20131223
  4. COREG [Suspect]
     Route: 065
  5. COREG [Suspect]
     Dosage: 1.5 TABLETS TWICE PER DAY.
     Route: 065
  6. COREG [Suspect]
     Route: 065
  7. COREG [Suspect]
     Route: 065
     Dates: start: 20131223
  8. COREG [Suspect]
     Route: 065
     Dates: start: 20140102
  9. BANEZIPRIL [Concomitant]
     Indication: BLOOD PRESSURE ABNORMAL
     Route: 048
     Dates: start: 20140217
  10. ASPIRIN [Concomitant]
     Indication: STENT PLACEMENT
     Route: 048
     Dates: start: 20131223
  11. HYDROCHLOROTHIAZIDE [Concomitant]
     Indication: FLUID REPLACEMENT
     Route: 048
     Dates: start: 1980

REACTIONS (22)
  - Dyspnoea [Unknown]
  - Asthenia [Unknown]
  - Blood pressure decreased [Unknown]
  - Dizziness [Unknown]
  - Pallor [Unknown]
  - Cardiac disorder [Unknown]
  - Arterial disorder [Unknown]
  - Feeling cold [Unknown]
  - Panic reaction [Unknown]
  - Anxiety [Unknown]
  - Speech disorder [Unknown]
  - Bipolar disorder [Unknown]
  - Heart rate irregular [Not Recovered/Not Resolved]
  - Palpitations [Unknown]
  - Burning sensation [Unknown]
  - Heart rate decreased [Unknown]
  - Insomnia [Not Recovered/Not Resolved]
  - Blood pressure systolic increased [Unknown]
  - Chest discomfort [Unknown]
  - Extrasystoles [Not Recovered/Not Resolved]
  - Dyspnoea [Unknown]
  - Intentional product misuse [Unknown]
